FAERS Safety Report 7818652-2 (Version None)
Quarter: 2011Q4

REPORT INFORMATION
  Report Type: 
  Country: None (occurrence: None)
  Receive Date: 20111018
  Receipt Date: 20111004
  Transmission Date: 20120403
  Serious: Yes (Other)
  Sender: FDA-Public Use
  Company Number: ES-AMGEN-ESPSP2011052571

PATIENT
  Age: 47 Year
  Sex: Female

DRUGS (3)
  1. ADALIMUMAB [Suspect]
     Dosage: UNK
  2. METHOTREXATE [Suspect]
     Dosage: 2.5 MG, QWK
     Dates: start: 20030401
  3. ETANERCEPT [Suspect]
     Indication: RHEUMATOID ARTHRITIS
     Dosage: 25 MG, 2X/WEEK
     Route: 058
     Dates: start: 20030401

REACTIONS (2)
  - LIVER INJURY [None]
  - AUTOIMMUNE HEPATITIS [None]
